FAERS Safety Report 21186588 (Version 1)
Quarter: 2022Q3

REPORT INFORMATION
  Report Type: Spontaneous
  Country: US (occurrence: US)
  Receive Date: 20220808
  Receipt Date: 20220808
  Transmission Date: 20221026
  Serious: No
  Sender: FDA-Public Use
  Company Number: US-PFIZER INC-202201041171

PATIENT

DRUGS (1)
  1. PAXLOVID [Suspect]
     Active Substance: NIRMATRELVIR\RITONAVIR
     Indication: COVID-19 treatment
     Dosage: UNK

REACTIONS (9)
  - Middle insomnia [Recovering/Resolving]
  - Nightmare [Recovering/Resolving]
  - Tremor [Recovering/Resolving]
  - Blood pressure abnormal [Recovering/Resolving]
  - Palpitations [Recovering/Resolving]
  - Hypoaesthesia [Recovering/Resolving]
  - Dry mouth [Recovering/Resolving]
  - Drug hypersensitivity [Unknown]
  - Illness [Unknown]
